FAERS Safety Report 5139017-0 (Version None)
Quarter: 2006Q4

REPORT INFORMATION
  Report Type: 
  Country: None (occurrence: None)
  Receive Date: 20061030
  Receipt Date: 20060606
  Transmission Date: 20070319
  Serious: No
  Sender: FDA-Public Use
  Company Number: US-GLAXOSMITHKLINE-A0608053A

PATIENT
  Age: 56 Year
  Sex: Female

DRUGS (15)
  1. ADVAIR HFA [Suspect]
     Indication: ASTHMA
     Dosage: 1PUFF TWICE PER DAY
     Route: 055
  2. FLONASE [Suspect]
     Dosage: 2SPR TWICE PER DAY
     Route: 045
  3. ADVAIR HFA [Concomitant]
  4. ALBUTEROL [Concomitant]
  5. SINGULAIR [Concomitant]
  6. OCEAN NASAL SPRAY [Concomitant]
  7. LEVOTHYROXINE SODIUM [Concomitant]
  8. ZESTRIL [Concomitant]
  9. TOPROL-XL [Concomitant]
  10. HYDROCHLOROTHIAZIDE [Concomitant]
  11. ALLOPURINOL [Concomitant]
  12. MUCINEX [Concomitant]
  13. VITAMIN CAP [Concomitant]
  14. CALCIUM SUPPLEMENTS [Concomitant]
  15. VITAMIN B COMPLEX CAP [Concomitant]

REACTIONS (5)
  - DYSPHONIA [None]
  - EPISTAXIS [None]
  - NASAL DRYNESS [None]
  - NASAL ULCER [None]
  - PHARYNGOLARYNGEAL PAIN [None]
